FAERS Safety Report 18854907 (Version 2)
Quarter: 2021Q1

REPORT INFORMATION
  Report Type: Report from Study
  Country: None (occurrence: CH)
  Receive Date: 20210206
  Receipt Date: 20210316
  Transmission Date: 20210420
  Serious: Yes (Hospitalization)
  Sender: FDA-Public Use
  Company Number: CH-ABBVIE-21K-151-3759744-00

PATIENT
  Sex: Male

DRUGS (2)
  1. DUODOPA [Suspect]
     Active Substance: CARBIDOPA\LEVODOPA
  2. DUODOPA [Suspect]
     Active Substance: CARBIDOPA\LEVODOPA
     Indication: PARKINSON^S DISEASE
     Dosage: MD: 10 ML, CRD: 2.7 ML/H, CRN: 0 ML/H, ED: 2.5 ML;16 H THERAPY
     Route: 050
     Dates: start: 20150710

REACTIONS (4)
  - Weight decreased [Not Recovered/Not Resolved]
  - Blood pressure systolic abnormal [Unknown]
  - Fall [Not Recovered/Not Resolved]
  - Orthostatic intolerance [Not Recovered/Not Resolved]
